FAERS Safety Report 14157190 (Version 1)
Quarter: 2017Q4

REPORT INFORMATION
  Report Type: Spontaneous
  Country: RS (occurrence: RS)
  Receive Date: 20171103
  Receipt Date: 20171103
  Transmission Date: 20180321
  Serious: Yes (Other)
  Sender: FDA-Public Use
  Company Number: RS-JNJFOC-20171100714

PATIENT
  Age: 49 Year
  Sex: Male

DRUGS (1)
  1. IMBRUVICA [Suspect]
     Active Substance: IBRUTINIB
     Indication: CHRONIC LYMPHOCYTIC LEUKAEMIA
     Route: 048
     Dates: start: 20170620

REACTIONS (4)
  - Lymphocytosis [Unknown]
  - Leukocytosis [Unknown]
  - Neutropenia [Unknown]
  - Thrombocytopenia [Unknown]
